FAERS Safety Report 5204975-2 (Version None)
Quarter: 2007Q1

REPORT INFORMATION
  Report Type: 
  Country: None (occurrence: None)
  Receive Date: 20070110
  Receipt Date: 20060922
  Transmission Date: 20070707
  Serious: No
  Sender: FDA-Public Use
  Company Number: US-BRISTOL-MYERS SQUIBB COMPANY-13518469

PATIENT
  Age: 13 Year
  Sex: Male
  Weight: 48 kg

DRUGS (7)
  1. ABILIFY [Suspect]
     Indication: BIPOLAR DISORDER
     Dosage: AFTER 1 WEEK, THE ABILIFY WAS DECREASED TO ABILIFY 5MG DAILY.
     Route: 048
     Dates: start: 20060901
  2. ARTANE [Concomitant]
  3. PULMICORT [Concomitant]
  4. FLUOXETINE [Concomitant]
  5. ADDERALL 10 [Concomitant]
  6. CLARITIN [Concomitant]
  7. CLONIDINE [Concomitant]

REACTIONS (3)
  - COUGH [None]
  - NAUSEA [None]
  - PETIT MAL EPILEPSY [None]
